FAERS Safety Report 26210666 (Version 1)
Quarter: 2025Q4

REPORT INFORMATION
  Report Type: Spontaneous
  Country: EU (occurrence: EU)
  Receive Date: 20251230
  Receipt Date: 20251230
  Transmission Date: 20260117
  Serious: Yes (Other)
  Sender: AUROBINDO
  Company Number: EU-AFSSAPS-RN2025001210

PATIENT
  Age: 54 Year
  Sex: Female
  Weight: 81 kg

DRUGS (8)
  1. ACETAMINOPHEN [Suspect]
     Active Substance: ACETAMINOPHEN
     Indication: Pain
     Dosage: 1 GRAM (1 G SI BESOIN)
     Dates: start: 20251121, end: 20251121
  2. APREPITANT [Suspect]
     Active Substance: APREPITANT
     Indication: Antiemetic supportive care
     Dosage: 125 MILLIGRAM, ONCE A DAY (125 MG J1 PUIS 80 MG)
     Route: 061
     Dates: start: 20251120, end: 20251120
  3. APREPITANT [Suspect]
     Active Substance: APREPITANT
     Dosage: 80 MILLIGRAM, ONCE A DAY (125 MG J1 PUIS 80 MG)
     Route: 061
     Dates: start: 20251121, end: 20251124
  4. CARMUSTINE [Suspect]
     Active Substance: CARMUSTINE
     Indication: Transplant
     Dosage: 583.33 MILLIGRAM
     Dates: start: 20251120, end: 20251120
  5. PANTOPRAZOLE [Suspect]
     Active Substance: PANTOPRAZOLE
     Indication: Prophylaxis against gastrointestinal ulcer
     Dosage: 40 MILLIGRAM, ONCE A DAY
     Dates: end: 20251124
  6. VALACYCLOVIR HYDROCHLORIDE [Suspect]
     Active Substance: VALACYCLOVIR HYDROCHLORIDE
     Indication: Supportive care
     Dosage: 1 GRAM, ONCE A DAY
     Route: 061
     Dates: start: 20251120, end: 20251124
  7. CYTARABINE [Suspect]
     Active Substance: CYTARABINE
     Indication: Transplant
     Dosage: 395 MILLIGRAM
     Dates: start: 20251120, end: 20251123
  8. ETOPOSIDE [Suspect]
     Active Substance: ETOPOSIDE
     Indication: Transplant
     Dosage: 198 MILLIGRAM
     Dates: start: 20251121, end: 20251123

REACTIONS (1)
  - Liver function test abnormal [Recovering/Resolving]

NARRATIVE: CASE EVENT DATE: 20251122
